FAERS Safety Report 11864961 (Version 3)
Quarter: 2016Q1

REPORT INFORMATION
  Report Type: Spontaneous
  Country: US (occurrence: US)
  Receive Date: 20151223
  Receipt Date: 20160202
  Transmission Date: 20160526
  Serious: No
  Sender: FDA-Public Use
  Company Number: US-PFIZER INC-2015440840

PATIENT
  Age: 63 Year
  Sex: Female
  Weight: 70 kg

DRUGS (14)
  1. ATIVAN [Concomitant]
     Active Substance: LORAZEPAM
     Dosage: 1 MG, AS NEEDED(1MG TABLET, 1 TABLET AS NEEDED TWICE A DAY)
  2. LYRICA [Suspect]
     Active Substance: PREGABALIN
     Dosage: 600 MG, 3X/DAY
     Dates: start: 20151208
  3. PERCOCET [Concomitant]
     Active Substance: ACETAMINOPHEN\OXYCODONE HYDROCHLORIDE
     Dosage: (OXYCODONE HYDROCHLORIDE:10MG /PARACETAMOL: 325MG) TABLET AS NEEDED EVERY 6 HRS
  4. OXYCODONE [Concomitant]
     Active Substance: OXYCODONE
     Indication: NEUROPATHY PERIPHERAL
     Dosage: 1 DF, 4X/DAY
     Dates: start: 201501
  5. LYRICA [Suspect]
     Active Substance: PREGABALIN
     Indication: DIABETIC NEUROPATHY
     Dosage: 200 MG, 3X/DAY
     Route: 048
     Dates: start: 201508, end: 20151014
  6. HYDROXYZINE PAMOATE. [Concomitant]
     Active Substance: HYDROXYZINE PAMOATE
     Dosage: 50 MG, AS NEEDED (1 CAPSULE AS NEEDED EVERY 6HRS)
  7. ZOFRAN [Concomitant]
     Active Substance: ONDANSETRON HYDROCHLORIDE
     Dosage: 4 MG, 2X/DAY
  8. LYRICA [Suspect]
     Active Substance: PREGABALIN
     Indication: NEUROPATHY PERIPHERAL
     Dosage: 100 MG, 3X/DAY
     Dates: start: 201508
  9. ATENOLOL. [Concomitant]
     Active Substance: ATENOLOL
     Dosage: 1 DF, UNK
  10. CITALOPRAM HYDROBROMIDE. [Concomitant]
     Active Substance: CITALOPRAM HYDROBROMIDE
     Dosage: 20 MG, 1X/DAY (40MG TABLET 0.5 TABLETONCE A DAY)
  11. PRIMATENE [Concomitant]
     Active Substance: EPHEDRINE HYDROCHLORIDE\GUAIFENESIN
     Indication: ASTHMA
     Dosage: 1 DF, AS NEEDED (EVERY 4 HRS)
  12. LORAZEPAM. [Concomitant]
     Active Substance: LORAZEPAM
     Dosage: 1 MG, AS NEEDED (1MG TABLET, 1 TABLET AS NEEDED TWICE A DAY)
  13. REQUIP [Concomitant]
     Active Substance: ROPINIROLE HYDROCHLORIDE
     Dosage: 0.25 MG, 1X/DAY ( TABLET 1 TO 3 HOURS BEFORE BEDTIME ONCE A DAY)
  14. GABAPENTIN. [Concomitant]
     Active Substance: GABAPENTIN
     Dosage: 400 MG, 3X/DAY

REACTIONS (7)
  - Balance disorder [Not Recovered/Not Resolved]
  - Dysgraphia [Unknown]
  - Drug effect incomplete [Unknown]
  - Intentional product use issue [Unknown]
  - Nausea [Unknown]
  - Myoclonus [Not Recovered/Not Resolved]
  - Prescribed overdose [Unknown]

NARRATIVE: CASE EVENT DATE: 201508
